FAERS Safety Report 7710704-0 (Version None)
Quarter: 2011Q3

REPORT INFORMATION
  Report Type: 
  Country: None (occurrence: None)
  Receive Date: 20110825
  Receipt Date: 20110818
  Transmission Date: 20111222
  Serious: Yes (Other)
  Sender: FDA-Public Use
  Company Number: PHEH2010US00483

PATIENT
  Sex: Female

DRUGS (7)
  1. ZOMETA [Suspect]
  2. MORPHINE [Concomitant]
  3. AMBIEN [Concomitant]
  4. ASPIRIN [Concomitant]
  5. METFORMIN HCL [Concomitant]
  6. LOPRESSOR [Concomitant]
  7. DEMEROL [Concomitant]

REACTIONS (14)
  - AXILLARY MASS [None]
  - DIZZINESS [None]
  - TOOTHACHE [None]
  - DIABETES MELLITUS [None]
  - IMPAIRED HEALING [None]
  - BREAST CANCER METASTATIC [None]
  - SUBCUTANEOUS ABSCESS [None]
  - ANXIETY [None]
  - DECREASED INTEREST [None]
  - GENERAL PHYSICAL HEALTH DETERIORATION [None]
  - OSTEONECROSIS OF JAW [None]
  - PAIN [None]
  - HYPERTENSION [None]
  - OSTEOMYELITIS [None]
